FAERS Safety Report 17136140 (Version 1)
Quarter: 2019Q4

REPORT INFORMATION
  Report Type: Spontaneous
  Country: GB (occurrence: GB)
  Receive Date: 20191210
  Receipt Date: 20191210
  Transmission Date: 20200122
  Serious: Yes (Other)
  Sender: FDA-Public Use
  Company Number: GB-BAUSCH-BL-2019-064527

PATIENT
  Age: 20 Year
  Sex: Female
  Weight: 60.32 kg

DRUGS (1)
  1. TROPICAMIDE. [Suspect]
     Active Substance: TROPICAMIDE
     Indication: MYDRIASIS
     Dosage: 2 DROPS LEFT EYE AND 1 DROP RIGHT EYE
     Route: 047
     Dates: start: 20191119, end: 20191119

REACTIONS (1)
  - Malaise [Recovering/Resolving]

NARRATIVE: CASE EVENT DATE: 20191119
